FAERS Safety Report 6784157-3 (Version None)
Quarter: 2010Q2

REPORT INFORMATION
  Report Type: 
  Country: None (occurrence: None)
  Receive Date: 20100617
  Receipt Date: 20100602
  Transmission Date: 20101027
  Serious: Yes (Hospitalization)
  Sender: FDA-Public Use
  Company Number: JP-002165

PATIENT
  Age: 30 Year
  Sex: Female

DRUGS (2)
  1. HUMAN MENOPAUSAL GONADOTROPHIN (HUMAN MENOPAUSAL GONADOTROPHIN) INHJEC [Suspect]
     Indication: OVULATION INDUCTION
     Dosage: 300 IU
     Route: 030
  2. HCG (CHRONIC GONADOTROPHIN) INJECTION [Suspect]
     Indication: OVULATION INDUCTION
     Dosage: 5000 IU
     Route: 030

REACTIONS (3)
  - ANAEMIA [None]
  - HAEMORRHAGIC ASCITES [None]
  - OVARIAN HYPERSTIMULATION SYNDROME [None]
